FAERS Safety Report 5859787-3 (Version None)
Quarter: 2008Q3

REPORT INFORMATION
  Report Type: 
  Country: None (occurrence: None)
  Receive Date: 20080827
  Receipt Date: 20080819
  Transmission Date: 20090109
  Serious: Yes (Disabling)
  Sender: FDA-Public Use
  Company Number: GB-MERCK-0808GBR00058

PATIENT
  Sex: Female

DRUGS (3)
  1. FOSAMAX [Suspect]
     Indication: OSTEOPOROSIS
     Route: 048
     Dates: start: 20080303, end: 20080416
  2. CALCIUM CARBONATE AND CHOLECALCIFEROL [Concomitant]
     Route: 048
     Dates: start: 20071213
  3. NORTRIPTYLINE [Concomitant]
     Route: 065
     Dates: start: 20060419

REACTIONS (4)
  - ARTHRALGIA [None]
  - DIARRHOEA [None]
  - JOINT CREPITATION [None]
  - JOINT STIFFNESS [None]
